FAERS Safety Report 24241518 (Version 1)
Quarter: 2024Q3

REPORT INFORMATION
  Report Type: Spontaneous
  Country: CN (occurrence: CN)
  Receive Date: 20240823
  Receipt Date: 20240823
  Transmission Date: 20241017
  Serious: Yes (Other)
  Sender: BEIGENE
  Company Number: CN-BEIGENE-BGN-2024-012866

PATIENT

DRUGS (4)
  1. TISLELIZUMAB [Suspect]
     Active Substance: TISLELIZUMAB
     Indication: Oesophageal carcinoma
     Dosage: 200 MILLIGRAM D1
     Route: 041
     Dates: start: 20240713
  2. CISPLATIN [Suspect]
     Active Substance: CISPLATIN
     Indication: Oesophageal carcinoma
     Dosage: 75 MILLIGRAM/SQ. METER (ALSO REPORTED AS 30MG D1, 40MG D2-3)
     Route: 041
     Dates: start: 20240713
  3. DOCETAXEL [Suspect]
     Active Substance: DOCETAXEL\DOCETAXEL ANHYDROUS
     Indication: Oesophageal carcinoma
     Dosage: 75 MILLIGRAM/SQ. METER (ALSO REPORTED AS 110MG D3)
     Route: 041
     Dates: start: 20240715
  4. FLUOROURACIL [Suspect]
     Active Substance: FLUOROURACIL
     Indication: Oesophageal carcinoma
     Dosage: 4 GRAM (ALSO REPORTED AS 0.50 G IV, 3.25G CONTINUOUS MICRO-PUMP 72H)
     Dates: start: 20240713

REACTIONS (7)
  - Myelosuppression [Recovering/Resolving]
  - Rash [Recovering/Resolving]
  - Temperature intolerance [Recovering/Resolving]
  - Pyrexia [Recovering/Resolving]
  - Flushing [Recovering/Resolving]
  - Skin exfoliation [Recovering/Resolving]
  - Pigmentation disorder [Recovering/Resolving]

NARRATIVE: CASE EVENT DATE: 20240714
